FAERS Safety Report 8375247-2 (Version None)
Quarter: 2012Q2

REPORT INFORMATION
  Report Type: 
  Country: None (occurrence: None)
  Receive Date: 20120522
  Receipt Date: 20120515
  Transmission Date: 20120825
  Serious: Yes (Hospitalization)
  Sender: FDA-Public Use
  Company Number: US-BIOGENIDEC-2012BI009217

PATIENT
  Age: 49 Year
  Sex: Male
  Weight: 65 kg

DRUGS (55)
  1. TRIMETHOBENZAMIDE HCL [Concomitant]
     Route: 030
  2. MAGNESIUM HYDROXIDE TAB [Concomitant]
     Route: 048
  3. ZOLPIDEM [Concomitant]
     Route: 048
  4. MULTI-VITAMIN [Concomitant]
     Route: 048
  5. POTASSIUM CHLORIDE [Concomitant]
     Indication: ELECTROLYTE SUBSTITUTION THERAPY
     Route: 048
  6. BISACODYL [Concomitant]
     Route: 054
  7. GLUTOSE [Concomitant]
     Route: 048
  8. SODIUM CHLORIDE [Concomitant]
     Route: 045
  9. SODIUM CHLORIDE [Concomitant]
     Route: 042
  10. FISH OIL [Concomitant]
  11. MAGNESIUM ASPARTATE [Concomitant]
     Route: 048
  12. SUDAFED 12 HOUR [Concomitant]
     Indication: GENERAL SYMPTOM
     Route: 048
  13. NORCO [Concomitant]
     Indication: HEADACHE
     Route: 048
  14. FAMOTIDINE [Concomitant]
     Route: 048
  15. MIRTAZAPINE [Concomitant]
     Route: 048
  16. ENOXAPARIN [Concomitant]
     Indication: THROMBOSIS PROPHYLAXIS
     Route: 058
  17. TORADOL [Concomitant]
     Dates: start: 20120301
  18. METHYLPHENIDATE [Concomitant]
     Route: 048
  19. NORCO [Concomitant]
     Route: 048
  20. MORPHINE [Concomitant]
     Indication: HEADACHE
     Route: 042
  21. MORPHINE [Concomitant]
     Indication: FACIAL PAIN
     Route: 042
  22. HYDRALAZINE HCL [Concomitant]
     Route: 042
  23. SERTRALINE HYDROCHLORIDE [Concomitant]
     Route: 048
  24. TYSABRI [Suspect]
     Indication: MULTIPLE SCLEROSIS
     Route: 042
     Dates: start: 20080408, end: 20120221
  25. BACLOFEN [Concomitant]
     Indication: MUSCLE SPASTICITY
     Route: 048
     Dates: end: 20120401
  26. BACLOFEN [Concomitant]
     Indication: PAIN
     Route: 048
     Dates: end: 20120401
  27. DIPHENHYDRAMINE HCL [Concomitant]
     Indication: HYPERSENSITIVITY
     Route: 042
  28. POLYETHYLENE GLYCOL [Concomitant]
     Route: 048
  29. ACETAMINOPHEN [Concomitant]
  30. COQ10 [Concomitant]
     Route: 048
  31. GINSENG [Concomitant]
     Route: 048
  32. IBUPROFEN [Concomitant]
     Indication: PAIN
     Route: 048
  33. VITAMIN B COMPLEX CAP [Concomitant]
     Route: 048
  34. METOCLOPRAMIDE [Concomitant]
     Route: 048
  35. MORPHINE [Concomitant]
     Indication: PAIN
     Route: 042
  36. ONDANSETRON [Concomitant]
     Route: 048
  37. ONDANSETRON [Concomitant]
     Route: 042
  38. LIDOCAINE 1% [Concomitant]
  39. TEGRETOL [Concomitant]
     Indication: CONVULSION
     Route: 048
  40. TIZANIDINE [Concomitant]
     Route: 048
  41. CALCIUM [Concomitant]
     Route: 048
  42. NORCO [Concomitant]
     Route: 048
  43. AMLODIPINE BESYLATE [Concomitant]
     Indication: HYPERTENSION
     Route: 048
  44. DEXTROSE 50% [Concomitant]
     Route: 042
  45. FAMOTIDINE [Concomitant]
     Route: 042
  46. DOCUSATE SODIUM [Concomitant]
     Route: 048
  47. PREGABALIN [Concomitant]
     Route: 048
  48. NORCO [Concomitant]
     Indication: PAIN
     Route: 048
  49. PROMETHAZINE [Concomitant]
     Route: 048
  50. TAMSULOSIN HCL [Concomitant]
     Indication: URINARY RETENTION
     Route: 048
  51. AMANTADINE HCL [Concomitant]
     Route: 048
  52. GINKOBA BILOBA [Concomitant]
     Route: 048
  53. NICODERM CQ [Concomitant]
     Route: 062
  54. NALOXONE [Concomitant]
  55. FENTANYL [Concomitant]
     Indication: PAIN
     Route: 042

REACTIONS (3)
  - MENINGITIS CRYPTOCOCCAL [None]
  - SINUSITIS [None]
  - CRYPTOCOCCAL FUNGAEMIA [None]
